FAERS Safety Report 19391195 (Version 1)
Quarter: 2021Q2

REPORT INFORMATION
  Report Type: Spontaneous
  Country: US (occurrence: US)
  Receive Date: 20210608
  Receipt Date: 20210608
  Transmission Date: 20210717
  Serious: Yes (Hospitalization, Other)
  Sender: FDA-Public Use
  Company Number: US-LUNDBECK-DKLU3033856

PATIENT
  Age: 13 Year
  Sex: Male

DRUGS (4)
  1. SABRIL [Suspect]
     Active Substance: VIGABATRIN
     Indication: ENCEPHALITIS
  2. SABRIL [Suspect]
     Active Substance: VIGABATRIN
     Indication: IDIOPATHIC GENERALISED EPILEPSY
     Dosage: OVERDOSE: 5000MG VIGABATRIN DAILY
     Route: 048
  3. SABRIL [Suspect]
     Active Substance: VIGABATRIN
     Indication: ENCEPHALOMYELITIS
  4. SABRIL [Suspect]
     Active Substance: VIGABATRIN
     Indication: INFANTILE SPASMS

REACTIONS (3)
  - Aspiration [Unknown]
  - Pneumonia [Unknown]
  - Prescribed overdose [Unknown]
